FAERS Safety Report 5138218-5 (Version None)
Quarter: 2006Q4

REPORT INFORMATION
  Report Type: 
  Country: None (occurrence: None)
  Receive Date: 20061030
  Receipt Date: 20060726
  Transmission Date: 20070319
  Serious: Yes (Other)
  Sender: FDA-Public Use
  Company Number: US-GLAXOSMITHKLINE-A0613709A

PATIENT
  Age: 71 Year
  Sex: Female

DRUGS (5)
  1. ADVAIR HFA [Suspect]
     Indication: ASTHMA
     Dosage: 1PUFF TWICE PER DAY
     Route: 055
     Dates: start: 20060601, end: 20060719
  2. ALBUTEROL [Concomitant]
  3. BLOOD PRESSURE MEDICATION [Concomitant]
  4. DIABETES MEDICATION [Concomitant]
  5. DIURETIC [Concomitant]

REACTIONS (8)
  - ASTHMA [None]
  - CHOKING SENSATION [None]
  - DEPRESSION [None]
  - DRUG INEFFECTIVE [None]
  - FEELING JITTERY [None]
  - HEART RATE IRREGULAR [None]
  - PHARYNGOLARYNGEAL PAIN [None]
  - WEIGHT INCREASED [None]
